FAERS Safety Report 9633427 (Version 1)
Quarter: 2013Q4

REPORT INFORMATION
  Report Type: Spontaneous
  Country: US (occurrence: US)
  Receive Date: 20131021
  Receipt Date: 20131021
  Transmission Date: 20140711
  Serious: No
  Sender: FDA-Public Use
  Company Number: US-BRISTOL-MYERS SQUIBB COMPANY-19434232

PATIENT
  Age: 42 Year
  Sex: Male

DRUGS (1)
  1. YERVOY [Suspect]
     Indication: GLIOBLASTOMA MULTIFORME
     Dosage: INFUSION
     Route: 042
     Dates: start: 20130905

REACTIONS (1)
  - Cough [Unknown]
